FAERS Safety Report 5800885-8 (Version None)
Quarter: 2008Q3

REPORT INFORMATION
  Report Type: 
  Country: None (occurrence: None)
  Receive Date: 20080701
  Receipt Date: 20080623
  Transmission Date: 20090109
  Serious: Yes (Other)
  Sender: FDA-Public Use
  Company Number: 2008SP012638

PATIENT
  Age: 19 Year
  Weight: 67 kg

DRUGS (1)
  1. PEG-INTRON [Suspect]
     Indication: DRUG USE FOR UNKNOWN INDICATION
     Dosage: 100 MCG; QW; SC
     Route: 058
     Dates: start: 20080413, end: 20080618

REACTIONS (1)
  - PNEUMOTHORAX [None]
